FAERS Safety Report 5748080-5 (Version None)
Quarter: 2008Q2

REPORT INFORMATION
  Report Type: 
  Country: None (occurrence: None)
  Receive Date: 20080523
  Receipt Date: 20080515
  Transmission Date: 20081010
  Serious: Yes (Hospitalization)
  Sender: FDA-Public Use
  Company Number: GB-ROCHE-552899

PATIENT
  Sex: Female
  Weight: 114.3 kg

DRUGS (13)
  1. ORLISTAT [Suspect]
     Indication: OBESITY
     Route: 048
     Dates: start: 20071127
  2. SULFASALAZINE [Concomitant]
     Indication: ARTHRITIS
     Route: 048
  3. NAPROXIN [Concomitant]
     Indication: ARTHRITIS
     Route: 048
  4. TRAMADOL HCL [Concomitant]
     Indication: ANALGESIA
     Dosage: TAKEN AS REQUIRED
     Route: 048
  5. EPROSARTAN [Concomitant]
     Indication: HYPERTENSION
     Route: 048
  6. INDAPAMIDE [Concomitant]
     Indication: HYPERTENSION
     Route: 048
  7. CLOPIDOGREL [Concomitant]
     Indication: ANTICOAGULANT THERAPY
     Dosage: DRUG NAME REPORTED AS: CLOPIDOGREL HYDROGEN SULPHATE
     Route: 048
  8. ROSUVASTATIN [Concomitant]
     Route: 048
  9. ACETAMINOPHEN [Concomitant]
     Dosage: DOSING REPORTED AS: 1-2 QDS PRN
  10. ASPIRIN [Concomitant]
     Dosage: DISPERSIBLE TABLETS
  11. GLYCERYL TRINITRATE [Concomitant]
     Dosage: USE ASD
  12. FYBOGEL [Concomitant]
     Dosage: FYBOGREL GRANULES (LEMON) 3.5 GRAM/SACHET
  13. BUTRANS [Concomitant]
     Dosage: STRENGTH: 20MG/HOUR (20MG/PATCH).  DOSING REPORTED AS: ONE PER WEEK MONDAY 4 PATCH
     Route: 062

REACTIONS (2)
  - CARDIOVASCULAR DISORDER [None]
  - SKIN DISCOLOURATION [None]
